FAERS Safety Report 13570938 (Version 1)
Quarter: 2017Q2

REPORT INFORMATION
  Report Type: Spontaneous
  Country: US (occurrence: US)
  Receive Date: 20170523
  Receipt Date: 20170523
  Transmission Date: 20170830
  Serious: No
  Sender: FDA-Public Use
  Company Number: US-TEVA-730921ACC

PATIENT
  Sex: Female
  Weight: 56.75 kg

DRUGS (2)
  1. ETHYNODIOL DIACETATE AND ETHINYL ESTRADIOL [Suspect]
     Active Substance: ETHINYL ESTRADIOL\ETHYNODIOL DIACETATE
     Indication: MIGRAINE
  2. ETHYNODIOL DIACETATE AND ETHINYL ESTRADIOL [Suspect]
     Active Substance: ETHINYL ESTRADIOL\ETHYNODIOL DIACETATE
     Indication: MENSTRUATION IRREGULAR
     Dosage: ETHYNODIOL DIACETATE/ETHINYL ESTRADIOL : 1/0.035 MG

REACTIONS (3)
  - Metrorrhagia [Unknown]
  - Migraine [Unknown]
  - Product use in unapproved indication [Unknown]
